FAERS Safety Report 5139848-7 (Version None)
Quarter: 2006Q4

REPORT INFORMATION
  Report Type: 
  Country: None (occurrence: None)
  Receive Date: 20061026
  Receipt Date: 20061026
  Transmission Date: 20070319
  Serious: Yes (Hospitalization)
  Sender: FDA-Public Use
  Company Number: None

PATIENT
  Sex: Male
  Weight: 75.2971 kg

DRUGS (1)
  1. AMOXICILLIN + CLAVULANATE POTASSIUM [Suspect]
     Indication: CELLULITIS
     Dosage: 875/125MG  BID  PO
     Route: 048
     Dates: start: 20060706, end: 20060711

REACTIONS (2)
  - DRUG HYPERSENSITIVITY [None]
  - RASH [None]
